FAERS Safety Report 13125442 (Version 1)
Quarter: 2017Q1

REPORT INFORMATION
  Report Type: Spontaneous
  Country: US (occurrence: US)
  Receive Date: 20170118
  Receipt Date: 20170118
  Transmission Date: 20170428
  Serious: No
  Sender: FDA-Public Use
  Company Number: US-DEPOMED, INC.-US-2016DEP009654

PATIENT

DRUGS (1)
  1. NUCYNTA [Suspect]
     Active Substance: TAPENTADOL HYDROCHLORIDE
     Indication: PRODUCT USED FOR UNKNOWN INDICATION
     Dosage: UNK

REACTIONS (13)
  - Constipation [Unknown]
  - Diarrhoea [Unknown]
  - Impaired driving ability [Unknown]
  - Dysstasia [Unknown]
  - Dysphonia [Unknown]
  - Abdominal pain upper [Unknown]
  - Vomiting [Unknown]
  - Laryngitis [Unknown]
  - Decreased appetite [Unknown]
  - Cough [Unknown]
  - Malaise [Unknown]
  - Dizziness [Unknown]
  - Headache [Unknown]
